FAERS Safety Report 19302235 (Version 6)
Quarter: 2023Q4

REPORT INFORMATION
  Report Type: Report from Study
  Country: CA (occurrence: CA)
  Receive Date: 20210525
  Receipt Date: 20231128
  Transmission Date: 20240110
  Serious: Yes (Hospitalization)
  Sender: FDA-Public Use
  Company Number: PHHY2019CA071386

PATIENT
  Sex: Male

DRUGS (7)
  1. COSENTYX [Suspect]
     Active Substance: SECUKINUMAB
     Indication: Psoriasis
     Dosage: 300 MG, QMO
     Route: 058
     Dates: start: 20180306
  2. COSENTYX [Suspect]
     Active Substance: SECUKINUMAB
     Dosage: 300 MG, QMO
     Route: 058
     Dates: start: 20190226
  3. COSENTYX [Suspect]
     Active Substance: SECUKINUMAB
     Dosage: (RESTARTED)
     Route: 065
     Dates: start: 20210601
  4. COSENTYX [Suspect]
     Active Substance: SECUKINUMAB
     Dosage: (RESTARTED ON 01 JUL YEAR NOT GIVEN)
     Route: 065
  5. HUMIRA [Concomitant]
     Active Substance: ADALIMUMAB
     Indication: Product used for unknown indication
     Dosage: 1 DOSAGE FORM, Q2MO (BI MONTHLY)
     Route: 058
  6. ENBREL [Concomitant]
     Active Substance: ETANERCEPT
     Indication: Product used for unknown indication
     Dosage: QW
     Route: 058
     Dates: start: 2012
  7. METHOTREXATE [Concomitant]
     Active Substance: METHOTREXATE
     Indication: Product used for unknown indication
     Dosage: 5 DOSAGE FORM, QW
     Route: 048

REACTIONS (4)
  - Road traffic accident [Recovered/Resolved with Sequelae]
  - Multiple injuries [Unknown]
  - Psoriasis [Unknown]
  - Drug ineffective [Not Recovered/Not Resolved]

NARRATIVE: CASE EVENT DATE: 20210411
